FAERS Safety Report 21039162 (Version 1)
Quarter: 2022Q3

REPORT INFORMATION
  Report Type: Spontaneous
  Country: US (occurrence: US)
  Receive Date: 20220704
  Receipt Date: 20220704
  Transmission Date: 20221026
  Serious: Yes (Disabling, Other)
  Sender: FDA-Public Use
  Company Number: US-TEVA-2022-US-2052732

PATIENT
  Age: 36 Year
  Sex: Female
  Weight: 85 kg

DRUGS (11)
  1. DOCETAXEL [Suspect]
     Active Substance: DOCETAXEL
     Indication: Invasive ductal breast carcinoma
     Dosage: 6 CYCLES EVERY THREE WEEKS
     Route: 065
     Dates: start: 20141119, end: 20150311
  2. CARBOPLATIN [Suspect]
     Active Substance: CARBOPLATIN
     Indication: Invasive ductal breast carcinoma
     Dosage: 6 CYCLES EVERY THREE WEEKS
     Route: 065
     Dates: start: 20141119, end: 20150311
  3. HERCEPTIN [Suspect]
     Active Substance: TRASTUZUMAB
     Indication: Invasive ductal breast carcinoma
     Dosage: 6 CYCLES EVERY THREE WEEKS
     Route: 065
     Dates: start: 20141119, end: 201511
  4. DOCETAXEL [Suspect]
     Active Substance: DOCETAXEL
     Indication: Invasive ductal breast carcinoma
     Dosage: 6 CYCLES EVERY THREE WEEKS
     Route: 065
     Dates: start: 20141119, end: 20150311
  5. NEULASTA [Concomitant]
     Active Substance: PEGFILGRASTIM
     Indication: Product used for unknown indication
     Dosage: DOSE: 6MG
     Route: 058
     Dates: start: 20150107
  6. NEULASTA [Concomitant]
     Active Substance: PEGFILGRASTIM
     Dosage: DOSE: 6MG
     Route: 058
     Dates: start: 20150128
  7. SYNTHROID [Concomitant]
     Active Substance: LEVOTHYROXINE SODIUM
     Indication: Product used for unknown indication
     Dosage: 50 MICROGRAM DAILY;
     Route: 048
     Dates: start: 20110101
  8. CITALOPRAM [Concomitant]
     Active Substance: CITALOPRAM HYDROBROMIDE
     Indication: Product used for unknown indication
     Route: 065
  9. ATIVAN [Concomitant]
     Active Substance: LORAZEPAM
     Indication: Product used for unknown indication
     Route: 065
  10. PAROXETINE [Concomitant]
     Active Substance: PAROXETINE
     Indication: Product used for unknown indication
     Route: 065
  11. ZOFRAN [Concomitant]
     Active Substance: ONDANSETRON HYDROCHLORIDE
     Indication: Prophylaxis of nausea and vomiting
     Route: 065

REACTIONS (11)
  - Alopecia areata [Not Recovered/Not Resolved]
  - Madarosis [Not Recovered/Not Resolved]
  - Device related infection [Unknown]
  - Infected seroma [Unknown]
  - Hair texture abnormal [Not Recovered/Not Resolved]
  - Hair colour changes [Not Recovered/Not Resolved]
  - Fatigue [Not Recovered/Not Resolved]
  - Catheter site pain [Unknown]
  - Staphylococcus test positive [Recovered/Resolved]
  - Cognitive disorder [Unknown]
  - Malaise [Unknown]

NARRATIVE: CASE EVENT DATE: 20140101
